FAERS Safety Report 9245296 (Version 2)
Quarter: 2013Q3

REPORT INFORMATION
  Report Type: Report from Study
  Country: BR (occurrence: BR)
  Receive Date: 20130422
  Receipt Date: 20130903
  Transmission Date: 20140515
  Serious: Yes (Hospitalization, Other)
  Sender: FDA-Public Use
  Company Number: PHHY2013BR038078

PATIENT
  Age: 40 Year
  Sex: Male

DRUGS (1)
  1. CODATEN [Suspect]
     Indication: PAIN
     Dosage: 50 MG, UNK

REACTIONS (3)
  - Post procedural complication [Recovering/Resolving]
  - Eschar [Recovering/Resolving]
  - Pain [Recovering/Resolving]
